FAERS Safety Report 6275515-4 (Version None)
Quarter: 2009Q3

REPORT INFORMATION
  Report Type: 
  Country: None (occurrence: None)
  Receive Date: 20090721
  Receipt Date: 20090709
  Transmission Date: 20100115
  Serious: Yes (Other)
  Sender: FDA-Public Use
  Company Number: CA-PFIZER INC-2009238387

PATIENT
  Age: 44 Year

DRUGS (6)
  1. ZELDOX [Suspect]
     Indication: BIPOLAR DISORDER
     Dosage: 80 MG, 2X/DAY
     Dates: start: 20090601
  2. CLONAZEPAM [Concomitant]
     Dosage: UNK
  3. BENZTROPINE MESYLATE [Concomitant]
     Dosage: UNK
  4. NOVO-PERIDOL [Concomitant]
     Dosage: UNK
  5. CLOMIPRAMINE [Concomitant]
     Dosage: UNK
  6. CITALOPRAM [Concomitant]
     Dosage: UNK

REACTIONS (2)
  - MEMORY IMPAIRMENT [None]
  - SOMNAMBULISM [None]
